FAERS Safety Report 10228899 (Version 2)
Quarter: 2014Q2

REPORT INFORMATION
  Report Type: Spontaneous
  Country: CA (occurrence: CA)
  Receive Date: 20140610
  Receipt Date: 20140610
  Transmission Date: 20141212
  Serious: Yes (Death)
  Sender: FDA-Public Use
  Company Number: CA-GLAXOSMITHKLINE-A0683059A

PATIENT
  Age: 68 Year
  Sex: Male
  Weight: 83.2 kg

DRUGS (8)
  1. AVANDIA [Suspect]
     Indication: DIABETES MELLITUS
     Route: 048
     Dates: start: 200507, end: 20070830
  2. DIABETES MEDICATION [Concomitant]
     Indication: DIABETES MELLITUS
     Route: 065
  3. INHIBACE [Concomitant]
  4. LOZIDE [Concomitant]
  5. METFORMIN [Concomitant]
  6. GLYBURIDE [Concomitant]
  7. NORVASC [Concomitant]
  8. CRESTOR [Concomitant]

REACTIONS (4)
  - Myocardial infarction [Fatal]
  - Cardiovascular disorder [Unknown]
  - Circulatory collapse [Unknown]
  - Cardiac arrest [Unknown]
